FAERS Safety Report 15041553 (Version 1)
Quarter: 2018Q2

REPORT INFORMATION
  Report Type: Spontaneous
  Country: GB (occurrence: GB)
  Receive Date: 20180621
  Receipt Date: 20180621
  Transmission Date: 20180711
  Serious: Yes (Other)
  Sender: FDA-Public Use
  Company Number: GB-TEVA-2018-GB-909660

PATIENT
  Age: 38 Year
  Sex: Female
  Weight: 100 kg

DRUGS (12)
  1. DALACIN [Concomitant]
     Active Substance: CLINDAMYCIN
     Dosage: APPLY TO AFFECTED AREAS
     Route: 065
     Dates: start: 20171019
  2. PREDNISOLONE. [Concomitant]
     Active Substance: PREDNISOLONE
     Dosage: 8 DOSAGE FORMS DAILY;
     Route: 065
     Dates: start: 20180423
  3. METRONIDAZOLE. [Concomitant]
     Active Substance: METRONIDAZOLE
     Dosage: 3 DOSAGE FORMS DAILY;
     Route: 065
     Dates: start: 20180131, end: 20180207
  4. CLARITHROMYCIN. [Suspect]
     Active Substance: CLARITHROMYCIN
     Route: 065
     Dates: start: 20180427
  5. FEXOFENADINE [Concomitant]
     Active Substance: FEXOFENADINE\FEXOFENADINE HYDROCHLORIDE
     Dosage: 1 DOSAGE FORMS DAILY;
     Route: 065
     Dates: start: 20171019
  6. ITRACONAZOLE. [Concomitant]
     Active Substance: ITRACONAZOLE
     Dosage: 1 DOSAGE FORMS DAILY; 2 ON FIRST DOSE. FINISH COURSE.
     Route: 065
     Dates: start: 20180213, end: 20180227
  7. ZAPAIN [Concomitant]
     Active Substance: ACETAMINOPHEN\CODEINE PHOSPHATE
     Dosage: 1 OR 2 4 TIMES/DAY
     Route: 065
     Dates: start: 20171019
  8. NYSTATIN. [Concomitant]
     Active Substance: NYSTATIN
     Dosage: APPLY 2-3 TIMES/DAY
     Route: 065
     Dates: start: 20180131, end: 20180207
  9. MONTELUKAST [Concomitant]
     Active Substance: MONTELUKAST SODIUM
     Dosage: 1 DOSAGE FORMS DAILY; NIGHT
     Route: 065
     Dates: start: 20170306
  10. FOSTAIR [Concomitant]
     Active Substance: BECLOMETHASONE\FORMOTEROL
     Dosage: 4 DOSAGE FORMS DAILY; PUFFS
     Route: 065
     Dates: start: 20170306
  11. LYMECYCLINE [Concomitant]
     Active Substance: LYMECYCLINE
     Dosage: 2 DOSAGE FORMS DAILY;
     Route: 065
     Dates: start: 20171019
  12. FLUTICASONE FUROATE [Concomitant]
     Active Substance: FLUTICASONE FUROATE
     Dosage: 2 DOSAGE FORMS DAILY; PUFFS INTO EACH NOSTRIL
     Route: 045
     Dates: start: 20171019

REACTIONS (1)
  - Swelling face [Recovering/Resolving]

NARRATIVE: CASE EVENT DATE: 20180427
